FAERS Safety Report 7472853-4 (Version None)
Quarter: 2011Q2

REPORT INFORMATION
  Report Type: 
  Country: None (occurrence: None)
  Receive Date: 20110503
  Receipt Date: 20110421
  Transmission Date: 20111010
  Serious: Yes (Hospitalization)
  Sender: FDA-Public Use
  Company Number: WAES 1104USA03201

PATIENT
  Age: 67 Year
  Sex: Male
  Weight: 76.6579 kg

DRUGS (12)
  1. BACTRIM [Concomitant]
  2. CIPRO [Concomitant]
  3. PROTONIX [Concomitant]
  4. CAP VORINOSTAT UNK [Suspect]
     Indication: MANTLE CELL LYMPHOMA
     Dosage: DAILY/PO
     Route: 048
     Dates: start: 20110314, end: 20110327
  5. CLADRIBINE [Suspect]
     Indication: MANTLE CELL LYMPHOMA
     Dosage: 9.5 MG/DAILY/IV
     Route: 042
     Dates: start: 20110314, end: 20110318
  6. ATIVAN [Concomitant]
  7. ACYCLOVIR [Concomitant]
  8. DOXAZOSIN MESYLATE [Concomitant]
  9. INJ RITUXIMAB UNK [Suspect]
     Indication: MANTLE CELL LYMPHOMA
     Dosage: 700 MG/1X/IV
     Route: 042
     Dates: start: 20110316, end: 20110316
  10. COMBIVENT [Concomitant]
  11. RESTASIS [Concomitant]
  12. SIMVASTATNI [Concomitant]

REACTIONS (3)
  - PLATELET COUNT DECREASED [None]
  - OCCULT BLOOD POSITIVE [None]
  - GASTROINTESTINAL HAEMORRHAGE [None]
